FAERS Safety Report 6014417-5 (Version None)
Quarter: 2008Q4

REPORT INFORMATION
  Report Type: 
  Country: None (occurrence: None)
  Receive Date: 20081219
  Receipt Date: 20080620
  Transmission Date: 20090506
  Serious: No
  Sender: FDA-Public Use
  Company Number: A0732252A

PATIENT
  Age: 76 Year
  Sex: Male

DRUGS (4)
  1. AVODART [Suspect]
     Indication: BENIGN PROSTATIC HYPERPLASIA
     Dosage: .5MG PER DAY
     Route: 048
     Dates: start: 20080519, end: 20080606
  2. ADVAIR DISKUS 250/50 [Concomitant]
  3. DIOVAN [Concomitant]
  4. NEXIUM [Concomitant]

REACTIONS (4)
  - BALANCE DISORDER [None]
  - DIZZINESS [None]
  - DYSKINESIA [None]
  - VERTIGO [None]
